FAERS Safety Report 10422183 (Version 7)
Quarter: 2015Q1

REPORT INFORMATION
  Report Type: Spontaneous
  Country: JP (occurrence: JP)
  Receive Date: 20140901
  Receipt Date: 20150324
  Transmission Date: 20150720
  Serious: Yes (Hospitalization, Other)
  Sender: FDA-Public Use
  Company Number: JP-ORION CORPORATION ORION PHARMA-ENT 2014-0128

PATIENT
  Age: 62 Year
  Sex: Male

DRUGS (6)
  1. MENESIT [Suspect]
     Active Substance: CARBIDOPA\LEVODOPA
     Route: 048
  2. COMTAN [Suspect]
     Active Substance: ENTACAPONE
     Indication: PARKINSON^S DISEASE
     Dosage: STRENGTH: 100 MG
     Route: 048
     Dates: start: 20140326, end: 20140731
  3. SYMMETREL [Suspect]
     Active Substance: AMANTADINE HYDROCHLORIDE
     Indication: PARKINSON^S DISEASE
     Dosage: STRENGTH: 500 MG
     Route: 048
     Dates: start: 20120821
  4. SYMMETREL [Suspect]
     Active Substance: AMANTADINE HYDROCHLORIDE
     Dosage: STRENGTH: 500 MG
     Route: 065
  5. ISTRADEFYLLINE [Suspect]
     Active Substance: ISTRADEFYLLINE
     Indication: PARKINSON^S DISEASE
     Route: 048
     Dates: start: 201405
  6. COMTAN [Suspect]
     Active Substance: ENTACAPONE
     Route: 065

REACTIONS (5)
  - Enteritis infectious [Unknown]
  - Weight decreased [Recovered/Resolved]
  - Ileus [Recovered/Resolved]
  - Enterocolitis [Recovered/Resolved]
  - Parkinson^s disease [Unknown]

NARRATIVE: CASE EVENT DATE: 201406
